FAERS Safety Report 7967621-0 (Version None)
Quarter: 2011Q4

REPORT INFORMATION
  Report Type: 
  Country: None (occurrence: None)
  Receive Date: 20111209
  Receipt Date: 20111128
  Transmission Date: 20120403
  Serious: Yes (Hospitalization)
  Sender: FDA-Public Use
  Company Number: IT-UCBSA-047014

PATIENT
  Age: 74 Year
  Sex: Female

DRUGS (4)
  1. MONOKET [Suspect]
     Indication: CARDIAC FAILURE
     Dosage: 60 MG ONCE
     Route: 048
     Dates: start: 20111126, end: 20111126
  2. LANSOPRAZOLE [Concomitant]
     Dosage: UNKNOWN DOSAGE
  3. WARFARIN SODIUM [Concomitant]
     Dosage: UNKNOWN DOSAGE
  4. LASIX [Concomitant]
     Dosage: UNKNOWN DOSAGE

REACTIONS (1)
  - PRESYNCOPE [None]
